FAERS Safety Report 8209618-1 (Version None)
Quarter: 2012Q1

REPORT INFORMATION
  Report Type: 
  Country: None (occurrence: None)
  Receive Date: 20120314
  Receipt Date: 20120229
  Transmission Date: 20120608
  Serious: Yes (Hospitalization, Other)
  Sender: FDA-Public Use
  Company Number: FI-ELI_LILLY_AND_COMPANY-FI201203000520

PATIENT
  Sex: Female

DRUGS (10)
  1. LYRICA [Concomitant]
     Dosage: 150 MG, BID
     Route: 048
  2. PARA-TABS [Concomitant]
     Dosage: 500 MG, TID
     Route: 048
  3. CYMBALTA [Suspect]
     Indication: NEURALGIA
     Dosage: 30 MG, QD
     Route: 048
     Dates: start: 20120203, end: 20120206
  4. CARBIDOPA + LEVODOPA [Concomitant]
     Dosage: 1 DF, TID
     Route: 048
  5. SPASMO-LYT PLUS [Concomitant]
     Dosage: 20 MG, QD
     Route: 048
  6. PRIMASPAN [Concomitant]
     Dosage: 100 MG, QD
     Route: 048
  7. CALCIUM CARBONATE [Concomitant]
     Dosage: 500 MG, BID
     Route: 048
  8. BUPRENORPHINE [Concomitant]
     Dosage: 1 DF, WEEKLY (1/W)
     Route: 062
  9. COLONSOFT [Concomitant]
     Dosage: 1 DF, BID
     Route: 048
  10. TRIMETIN [Concomitant]
     Dosage: 100 MG, QD
     Route: 048

REACTIONS (2)
  - RESPIRATORY FAILURE [None]
  - DYSPNOEA [None]
